FAERS Safety Report 15282531 (Version 1)
Quarter: 2018Q3

REPORT INFORMATION
  Report Type: Spontaneous
  Country: US (occurrence: US)
  Receive Date: 20180816
  Receipt Date: 20180816
  Transmission Date: 20181010
  Serious: No
  Sender: FDA-Public Use
  Company Number: US-009507513-1807USA010193

PATIENT
  Age: 70 Year
  Sex: Female

DRUGS (4)
  1. BELSOMRA [Suspect]
     Active Substance: SUVOREXANT
     Indication: INSOMNIA
     Dosage: 10 MG (1 TABLET, NIGHTLY)
     Route: 048
     Dates: start: 2018
  2. AMBIEN [Suspect]
     Active Substance: ZOLPIDEM TARTRATE
  3. BELSOMRA [Suspect]
     Active Substance: SUVOREXANT
     Indication: INSOMNIA
     Dosage: 15 MG (1 TABLET, NIGHTLY)
     Route: 048
     Dates: start: 2018
  4. BELSOMRA [Suspect]
     Active Substance: SUVOREXANT
     Indication: INSOMNIA
     Dosage: 20 MG, QD
     Route: 048
     Dates: start: 2018

REACTIONS (7)
  - Weight increased [Unknown]
  - Adverse event [Unknown]
  - Depression [Recovering/Resolving]
  - Decreased appetite [Recovered/Resolved]
  - Hyperphagia [Unknown]
  - Drug ineffective [Unknown]
  - Drug effect incomplete [Unknown]

NARRATIVE: CASE EVENT DATE: 2018
